FAERS Safety Report 12645136 (Version 3)
Quarter: 2016Q3

REPORT INFORMATION
  Report Type: Spontaneous
  Country: BR (occurrence: BR)
  Receive Date: 20160811
  Receipt Date: 20160901
  Transmission Date: 20161109
  Serious: Yes (Other)
  Sender: FDA-Public Use
  Company Number: PHHY2016BR109805

PATIENT
  Sex: Female
  Weight: 85 kg

DRUGS (5)
  1. INDAPEN [Concomitant]
     Active Substance: INDAPAMIDE
     Indication: HYPERTENSION
     Dosage: 2 DF, QD (FOR 5 YEARS)
     Route: 048
  2. SYNTHROID [Concomitant]
     Active Substance: LEVOTHYROXINE SODIUM
     Indication: THYROID DISORDER
     Dosage: 1 DF, QD (FOR 8 YEARS)
     Route: 048
  3. GLIPASE [Concomitant]
     Indication: DIABETES MELLITUS
     Dosage: 3 DF, QD
     Route: 048
  4. DIOVAN [Concomitant]
     Active Substance: VALSARTAN
     Indication: HYPERTENSION
     Dosage: 1 DF, QD (FROM 5 YEARS)
     Route: 048
  5. FORASEQ [Suspect]
     Active Substance: BUDESONIDE\FORMOTEROL FUMARATE
     Indication: ASTHMA
     Dosage: UNK UNK, BID
     Route: 055
     Dates: start: 2015

REACTIONS (16)
  - Hunger [Not Recovered/Not Resolved]
  - Tremor [Recovering/Resolving]
  - Fatigue [Recovered/Resolved]
  - Muscle spasms [Recovering/Resolving]
  - Somnolence [Recovered/Resolved]
  - Wrong technique in product usage process [Unknown]
  - Sinusitis [Recovered/Resolved]
  - Rhinitis [Recovering/Resolving]
  - Incorrect dose administered [Unknown]
  - Incorrect route of drug administration [Unknown]
  - Rhinorrhoea [Recovered/Resolved]
  - Tachycardia [Recovering/Resolving]
  - Malaise [Unknown]
  - Weight increased [Not Recovered/Not Resolved]
  - Nasopharyngitis [Unknown]
  - Pneumonia [Recovered/Resolved]

NARRATIVE: CASE EVENT DATE: 2015
